FAERS Safety Report 7057423-4 (Version None)
Quarter: 2010Q4

REPORT INFORMATION
  Report Type: 
  Country: None (occurrence: None)
  Receive Date: 20101021
  Receipt Date: 20101021
  Transmission Date: 20110411
  Serious: No
  Sender: FDA-Public Use
  Company Number: None

PATIENT
  Age: 34 Year
  Sex: Male

DRUGS (1)
  1. VASOPRO EPHEDRINE [Suspect]
     Indication: LIVER INJURY
     Dates: end: 20090331

REACTIONS (4)
  - ACUTE HEPATIC FAILURE [None]
  - HAEMATEMESIS [None]
  - LIVER INJURY [None]
  - RENAL FAILURE ACUTE [None]
